FAERS Safety Report 9640290 (Version 1)
Quarter: 2013Q4

REPORT INFORMATION
  Report Type: Spontaneous
  Country: US (occurrence: None)
  Receive Date: 20131021
  Receipt Date: 20131021
  Transmission Date: 20140711
  Serious: Yes (Other)
  Sender: FDA-Public Use
  Company Number: 2013SA098624

PATIENT
  Age: 22 Year
  Sex: Female

DRUGS (1)
  1. ICY HOT POWER GEL [Suspect]
     Indication: BACK PAIN
     Dates: start: 20130828

REACTIONS (1)
  - Thermal burn [None]
